FAERS Safety Report 19082608 (Version 1)
Quarter: 2021Q2

REPORT INFORMATION
  Report Type: Spontaneous
  Country: ME (occurrence: ME)
  Receive Date: 20210401
  Receipt Date: 20210401
  Transmission Date: 20210717
  Serious: Yes (Other)
  Sender: FDA-Public Use
  Company Number: ME-PFIZER INC-2021335954

PATIENT
  Sex: Female

DRUGS (1)
  1. PALBOCICLIB [Suspect]
     Active Substance: PALBOCICLIB

REACTIONS (7)
  - Hypertension [Unknown]
  - Arrhythmia [Unknown]
  - Leukopenia [Unknown]
  - Hypoaesthesia [Unknown]
  - Neutropenia [Unknown]
  - Fatigue [Unknown]
  - Asthenia [Unknown]
